FAERS Safety Report 7554695-4 (Version None)
Quarter: 2011Q2

REPORT INFORMATION
  Report Type: 
  Country: None (occurrence: None)
  Receive Date: 20110617
  Receipt Date: 20110610
  Transmission Date: 20111010
  Serious: Yes (Other)
  Sender: FDA-Public Use
  Company Number: CA-PFIZER INC-2011127409

PATIENT
  Age: 89 Year
  Sex: Female

DRUGS (3)
  1. VITALUX [Concomitant]
     Dosage: 1 CAP AM AND PM
  2. TYLENOL-500 [Concomitant]
     Dosage: UNK
  3. XALATAN [Suspect]
     Indication: GLAUCOMA
     Dosage: 1 GTT, 1X/DAY AT NIGHT
     Route: 047
     Dates: start: 20100101

REACTIONS (3)
  - EYE IRRITATION [None]
  - CEREBROVASCULAR ACCIDENT [None]
  - DRY EYE [None]
